FAERS Safety Report 19093716 (Version 1)
Quarter: 2021Q2

REPORT INFORMATION
  Report Type: Report from Study
  Country: None (occurrence: US)
  Receive Date: 20210405
  Receipt Date: 20210405
  Transmission Date: 20210717
  Serious: Yes (Other)
  Sender: FDA-Public Use
  Company Number: US-ABBVIE-21K-163-3801987-00

PATIENT
  Sex: Male

DRUGS (1)
  1. HUMIRA [Suspect]
     Active Substance: ADALIMUMAB
     Indication: PSORIASIS
     Route: 058

REACTIONS (7)
  - Coronary arterial stent insertion [Unknown]
  - Cellulitis [Unknown]
  - Knee arthroplasty [Unknown]
  - Emphysema [Unknown]
  - Gastrooesophageal reflux disease [Unknown]
  - Pulmonary fibrosis [Unknown]
  - Psoriasis [Not Recovered/Not Resolved]
